FAERS Safety Report 20150237 (Version 3)
Quarter: 2022Q1

REPORT INFORMATION
  Report Type: Spontaneous
  Country: US (occurrence: US)
  Receive Date: 20211206
  Receipt Date: 20220120
  Transmission Date: 20220423
  Serious: Yes (Hospitalization)
  Sender: FDA-Public Use
  Company Number: US-Global Blood Therapeutics Inc-US-GBT-21-04347

PATIENT
  Age: 34 Year
  Sex: Male

DRUGS (3)
  1. OXBRYTA [Suspect]
     Active Substance: VOXELOTOR
     Indication: Product used for unknown indication
     Route: 048
     Dates: end: 202111
  2. OXBRYTA [Suspect]
     Active Substance: VOXELOTOR
     Route: 048
     Dates: start: 202111
  3. OXBRYTA [Suspect]
     Active Substance: VOXELOTOR
     Route: 048

REACTIONS (5)
  - Pain [Unknown]
  - Coronavirus infection [Not Recovered/Not Resolved]
  - Fatigue [Recovered/Resolved]
  - Therapy non-responder [Unknown]
  - Product dose omission issue [Unknown]

NARRATIVE: CASE EVENT DATE: 20211115
